FAERS Safety Report 9440671 (Version 4)
Quarter: 2014Q2

REPORT INFORMATION
  Report Type: Spontaneous
  Country: US (occurrence: None)
  Receive Date: 20130801
  Receipt Date: 20140410
  Transmission Date: 20141212
  Serious: Yes (Other)
  Sender: FDA-Public Use
  Company Number: ADR-2013-01268

PATIENT
  Age: 54 Year
  Sex: Female

DRUGS (3)
  1. BACLOFEN INTRATHECAL [Suspect]
     Indication: PAIN
     Dosage: (200 MCG/ML ^4000MG^)
     Route: 037
  2. BUPIVACAINE [Suspect]
     Dosage: (^1.25% 250 MG^)
     Route: 037
  3. MORPHINE [Suspect]
     Dosage: (20 MG/ML ^400MG^)

REACTIONS (17)
  - Underdose [None]
  - Drug withdrawal syndrome [None]
  - Pain [None]
  - Dizziness [None]
  - Fatigue [None]
  - Asthenia [None]
  - Vomiting [None]
  - Malaise [None]
  - Muscle spasms [None]
  - Dyskinesia [None]
  - Muscle twitching [None]
  - Restlessness [None]
  - Device kink [None]
  - Fatigue [None]
  - Malaise [None]
  - No therapeutic response [None]
  - Road traffic accident [None]
